FAERS Safety Report 16635641 (Version 1)
Quarter: 2019Q3

REPORT INFORMATION
  Report Type: Spontaneous
  Country: US (occurrence: US)
  Receive Date: 20190726
  Receipt Date: 20190726
  Transmission Date: 20191004
  Serious: Yes (Hospitalization, Other)
  Sender: FDA-Public Use
  Company Number: US-IBIGEN-2019.06923

PATIENT
  Age: 75 Year
  Sex: Male

DRUGS (2)
  1. AMPICILLI/SULBACTAM [Suspect]
     Active Substance: AMPICILLIN SODIUM\SULBACTAM SODIUM
     Route: 042
  2. TPA [Concomitant]
     Active Substance: ALTEPLASE

REACTIONS (4)
  - Dysphagia [Not Recovered/Not Resolved]
  - Drug ineffective [Not Recovered/Not Resolved]
  - Condition aggravated [Not Recovered/Not Resolved]
  - Empyema [Not Recovered/Not Resolved]
